FAERS Safety Report 8983263 (Version 1)
Quarter: 2012Q4

REPORT INFORMATION
  Report Type: Report from Study
  Country: BR (occurrence: BR)
  Receive Date: 20121221
  Receipt Date: 20121221
  Transmission Date: 20130627
  Serious: Yes (Death)
  Sender: FDA-Public Use
  Company Number: BR-US-EMD SERONO, INC.-7183577

PATIENT
  Age: 59 None
  Sex: Female

DRUGS (1)
  1. REBIF [Suspect]
     Indication: PRODUCT USED FOR UNKNOWN INDICATION
     Route: 058
     Dates: start: 20091221, end: 20121215

REACTIONS (6)
  - Bronchopneumonia [Fatal]
  - Cardiomyopathy [Fatal]
  - Dyspnoea [Fatal]
  - Apathy [Fatal]
  - Somnolence [Fatal]
  - Fatigue [Fatal]
